FAERS Safety Report 8512101-7 (Version None)
Quarter: 2012Q2

REPORT INFORMATION
  Report Type: 
  Country: None (occurrence: None)
  Receive Date: 20120405
  Receipt Date: 20080805
  Transmission Date: 20120825
  Serious: Yes (Hospitalization, Disabling)
  Sender: FDA-Public Use
  Company Number: PHEH2008US06400

PATIENT
  Age: 79 Year
  Sex: Female
  Weight: 76.6 kg

DRUGS (7)
  1. RECLAST [Suspect]
     Indication: OSTEOPOROSIS
     Dosage: 5 MG, ONCE/SINGLE, INTRAVENOUS
     Route: 042
     Dates: start: 20080701, end: 20080701
  2. PREDNISONE TAB [Concomitant]
  3. BACLOFEN [Concomitant]
  4. DIOVAN [Concomitant]
  5. NORVASC [Concomitant]
  6. NEURONTIN [Concomitant]
  7. PLAQUENIL [Concomitant]

REACTIONS (5)
  - BONE PAIN [None]
  - NAUSEA [None]
  - ARTHRALGIA [None]
  - VOMITING [None]
  - MYALGIA [None]
